FAERS Safety Report 13172109 (Version 2)
Quarter: 2017Q2

REPORT INFORMATION
  Report Type: Spontaneous
  Country: IT (occurrence: IT)
  Receive Date: 20170201
  Receipt Date: 20170415
  Transmission Date: 20170830
  Serious: Yes (Hospitalization, Other)
  Sender: FDA-Public Use
  Company Number: IT-SUN PHARMACEUTICAL INDUSTRIES LTD-2017R1-132448

PATIENT
  Age: 45 Year
  Sex: Female

DRUGS (1)
  1. TOPIRAMATE. [Suspect]
     Active Substance: TOPIRAMATE
     Indication: LENNOX-GASTAUT SYNDROME
     Dosage: 100 MG, TID
     Route: 065
     Dates: start: 2006

REACTIONS (2)
  - Hypokalaemia [Recovering/Resolving]
  - Hyperaldosteronism [Recovering/Resolving]

NARRATIVE: CASE EVENT DATE: 2008
